FAERS Safety Report 15440950 (Version 1)
Quarter: 2018Q3

REPORT INFORMATION
  Report Type: Spontaneous
  Country: IT (occurrence: IT)
  Receive Date: 20180928
  Receipt Date: 20180928
  Transmission Date: 20181010
  Serious: Yes (Other)
  Sender: FDA-Public Use
  Company Number: IT-PFIZER INC-2018385592

PATIENT
  Age: 79 Year
  Sex: Male

DRUGS (4)
  1. ETOPOSIDE. [Suspect]
     Active Substance: ETOPOSIDE
     Indication: RENAL CELL CARCINOMA
  2. CARBOPLATIN. [Suspect]
     Active Substance: CARBOPLATIN
     Indication: PERITONEAL MESOTHELIOMA MALIGNANT
     Dosage: AT AUC 2, ON DAYS 1, 2 AND 3 OF EACH CYCLE. ONE CYCLE OF THE
     Route: 042
  3. CARBOPLATIN. [Suspect]
     Active Substance: CARBOPLATIN
     Indication: RENAL CELL CARCINOMA
  4. ETOPOSIDE. [Suspect]
     Active Substance: ETOPOSIDE
     Indication: PERITONEAL MESOTHELIOMA MALIGNANT
     Dosage: AT AUC 2, ON DAYS 1, 2 AND 3 OF EACH CYCLE. ONE CYCLE OF THE
     Route: 042

REACTIONS (1)
  - Haematotoxicity [Unknown]
